FAERS Safety Report 23820352 (Version 2)
Quarter: 2024Q2

REPORT INFORMATION
  Report Type: Spontaneous
  Country: US (occurrence: US)
  Receive Date: 20240506
  Receipt Date: 20240507
  Transmission Date: 20240716
  Serious: No
  Sender: FDA-Public Use
  Company Number: US-JNJFOC-20240477343

PATIENT
  Age: 72 Year
  Sex: Male

DRUGS (1)
  1. MOTRIN [Suspect]
     Active Substance: IBUPROFEN
     Indication: Procedural pain
     Route: 048
     Dates: start: 20240423

REACTIONS (2)
  - Wrong technique in product usage process [Unknown]
  - Product label issue [Unknown]

NARRATIVE: CASE EVENT DATE: 20240423
